FAERS Safety Report 7281423-2 (Version None)
Quarter: 2011Q1

REPORT INFORMATION
  Report Type: 
  Country: None (occurrence: None)
  Receive Date: 20110208
  Receipt Date: 20110128
  Transmission Date: 20110831
  Serious: Yes (Other)
  Sender: FDA-Public Use
  Company Number: US-BAYER-2011-009802

PATIENT

DRUGS (3)
  1. AVELOX [Suspect]
  2. TORADOL [Concomitant]
  3. UNCODEABLE ^UNCLASSIFIABLE^ [Concomitant]

REACTIONS (1)
  - ANGIOEDEMA [None]
